FAERS Safety Report 12324531 (Version 1)
Quarter: 2016Q2

REPORT INFORMATION
  Report Type: Spontaneous
  Country: US (occurrence: US)
  Receive Date: 20160502
  Receipt Date: 20160502
  Transmission Date: 20160815
  Serious: No
  Sender: FDA-Public Use
  Company Number: US-ABBVIE-15P-163-1468011-00

PATIENT
  Age: 48 Year
  Sex: Male

DRUGS (1)
  1. ANDROGEL [Suspect]
     Active Substance: TESTOSTERONE
     Indication: PRODUCT USED FOR UNKNOWN INDICATION
     Dosage: ONE PUMP TO EACH SHOULDER
     Route: 061
     Dates: start: 20150916, end: 20150921

REACTIONS (1)
  - Fatigue [Unknown]
